FAERS Safety Report 18695741 (Version 1)
Quarter: 2021Q1

REPORT INFORMATION
  Report Type: Spontaneous
  Country: US (occurrence: US)
  Receive Date: 20210104
  Receipt Date: 20210104
  Transmission Date: 20210419
  Serious: Yes (Hospitalization)
  Sender: FDA-Public Use
  Company Number: None

PATIENT
  Age: 64 Year
  Sex: Female
  Weight: 63.5 kg

DRUGS (2)
  1. MULTIVITAMIN [Concomitant]
     Active Substance: VITAMINS
  2. BREO ELLIPTA [Suspect]
     Active Substance: FLUTICASONE FUROATE\VILANTEROL TRIFENATATE
     Indication: RESPIRATORY TRACT CONGESTION
     Dosage: 200MCG/ 25 MCG/ 1 PUFF
     Route: 055
     Dates: start: 20201229, end: 20201229

REACTIONS (3)
  - Burning sensation [None]
  - Oesophageal pain [None]
  - Pain [None]

NARRATIVE: CASE EVENT DATE: 20201229
